FAERS Safety Report 4750718-6 (Version None)
Quarter: 2005Q3

REPORT INFORMATION
  Report Type: 
  Country: None (occurrence: None)
  Receive Date: 20050822
  Receipt Date: 20050808
  Transmission Date: 20060218
  Serious: Yes (Hospitalization)
  Sender: FDA-Public Use
  Company Number: 2005086589

PATIENT
  Age: 69 Year
  Sex: Male

DRUGS (1)
  1. LIPITOR [Suspect]
     Indication: HYPERLIPIDAEMIA
     Dosage: 10 MG (10 MG, 1 IN 1 D)

REACTIONS (6)
  - ARTHROPOD BITE [None]
  - DISORIENTATION [None]
  - HEADACHE [None]
  - HUMAN EHRLICHIOSIS [None]
  - PAIN [None]
  - PYREXIA [None]
